FAERS Safety Report 5781730-6 (Version None)
Quarter: 2008Q2

REPORT INFORMATION
  Report Type: 
  Country: None (occurrence: None)
  Receive Date: 20080623
  Receipt Date: 20080619
  Transmission Date: 20081010
  Serious: Yes (Hospitalization)
  Sender: FDA-Public Use
  Company Number: US-BRISTOL-MYERS SQUIBB COMPANY-14234850

PATIENT
  Age: 72 Year
  Sex: Male
  Weight: 68 kg

DRUGS (5)
  1. ERBITUX [Suspect]
     Dosage: RECEIVED IN NOV + DEC 2007
     Dates: start: 20071101
  2. COREG [Concomitant]
  3. LASIX [Concomitant]
  4. COUMADIN [Concomitant]
  5. ALLOPURINOL [Concomitant]

REACTIONS (4)
  - ANOREXIA [None]
  - ELECTROLYTE IMBALANCE [None]
  - RASH [None]
  - WEIGHT DECREASED [None]
